FAERS Safety Report 23822661 (Version 1)
Quarter: 2024Q2

REPORT INFORMATION
  Report Type: Spontaneous
  Country: US (occurrence: None)
  Receive Date: 20240506
  Receipt Date: 20240506
  Transmission Date: 20240716
  Serious: Yes (Other)
  Sender: FDA-Public Use
  Company Number: 2024A050684

PATIENT
  Sex: Female

DRUGS (1)
  1. TRUQAP [Suspect]
     Active Substance: CAPIVASERTIB
     Indication: Breast cancer metastatic
     Dosage: 200.0MG AS REQUIRED
     Route: 048
     Dates: start: 202402

REACTIONS (1)
  - Skin reaction [Recovering/Resolving]

NARRATIVE: CASE EVENT DATE: 20240227
